FAERS Safety Report 10694274 (Version 1)
Quarter: 2015Q1

REPORT INFORMATION
  Report Type: Spontaneous
  Country: GB (occurrence: GB)
  Receive Date: 20150107
  Receipt Date: 20150107
  Transmission Date: 20150721
  Serious: Yes (Other)
  Sender: FDA-Public Use
  Company Number: PHHY2014GB170566

PATIENT
  Age: 51 Year
  Sex: Female
  Weight: 163 kg

DRUGS (6)
  1. PARACETAMOL [Concomitant]
     Active Substance: ACETAMINOPHEN
     Indication: PRODUCT USED FOR UNKNOWN INDICATION
     Route: 065
  2. CLARITHROMYCIN. [Suspect]
     Active Substance: CLARITHROMYCIN
     Indication: LOWER RESPIRATORY TRACT INFECTION
     Dosage: 500 MG, BID
     Route: 048
     Dates: start: 20141218, end: 20141220
  3. FOSTAIR [Concomitant]
     Active Substance: BECLOMETHASONE\FORMOTEROL
     Indication: PRODUCT USED FOR UNKNOWN INDICATION
     Route: 065
  4. PREDNISOLON [Concomitant]
     Active Substance: PREDNISOLONE
     Indication: ASTHMA
     Route: 065
  5. ATROVENT [Concomitant]
     Active Substance: IPRATROPIUM BROMIDE
     Indication: ASTHMA
     Route: 055
  6. SALBUTAMOL [Concomitant]
     Active Substance: ALBUTEROL
     Indication: ASTHMA
     Route: 055

REACTIONS (9)
  - Paraesthesia [Recovered/Resolved]
  - Tremor [Recovered/Resolved]
  - Mental impairment [Recovered/Resolved]
  - Pruritus generalised [Recovered/Resolved]
  - Fear [Recovering/Resolving]
  - Dysarthria [Recovered/Resolved]
  - Paranoia [Recovered/Resolved]
  - Anxiety [Recovering/Resolving]
  - Aphasia [Recovered/Resolved]

NARRATIVE: CASE EVENT DATE: 20141219
